FAERS Safety Report 9011553 (Version 1)
Quarter: 2013Q1

REPORT INFORMATION
  Report Type: Spontaneous
  Country: JP (occurrence: JP)
  Receive Date: 20130108
  Receipt Date: 20130108
  Transmission Date: 20140127
  Serious: Yes (Other)
  Sender: FDA-Public Use
  Company Number: JP-PFIZER INC-2013005924

PATIENT
  Sex: Male

DRUGS (4)
  1. JZOLOFT [Suspect]
     Dosage: 25 MG DAILY
     Route: 048
     Dates: start: 20090831, end: 20090906
  2. JZOLOFT [Suspect]
     Dosage: 50 MG/DAY
     Route: 048
     Dates: start: 20090907, end: 20090918
  3. JZOLOFT [Suspect]
     Dosage: 100 MG/DAY
     Route: 048
     Dates: start: 20090919, end: 200910
  4. JZOLOFT [Suspect]
     Dosage: 150 MG/DAY
     Route: 048
     Dates: start: 200910

REACTIONS (4)
  - Cerebral haemorrhage [Unknown]
  - Haemorrhage [Unknown]
  - Necrosis [Unknown]
  - Paraplegia [Unknown]
